FAERS Safety Report 4277031-8 (Version None)
Quarter: 2004Q1

REPORT INFORMATION
  Report Type: 
  Country: None (occurrence: None)
  Receive Date: 20040120
  Receipt Date: 20040108
  Transmission Date: 20041129
  Serious: Yes (Other)
  Sender: FDA-Public Use
  Company Number: ENT 2004-0003

PATIENT
  Sex: Male

DRUGS (2)
  1. COMTAN [Suspect]
     Dosage: ORAL
     Route: 048
  2. SINEMET [Concomitant]

REACTIONS (1)
  - HALLUCINATION, VISUAL [None]
